FAERS Safety Report 4377520-1 (Version None)
Quarter: 2004Q2

REPORT INFORMATION
  Report Type: 
  Country: None (occurrence: None)
  Receive Date: 20040609
  Receipt Date: 20040219
  Transmission Date: 20050107
  Serious: No
  Sender: FDA-Public Use
  Company Number: PHEH2004US02179

PATIENT
  Age: 32 Year
  Sex: Female

DRUGS (2)
  1. GLEEVEC [Suspect]
  2. ORAL CONTRACEPTIVE NOS(ORAL CONTRACEPTIVE NOS) [Suspect]

REACTIONS (1)
  - PREGNANCY TEST FALSE POSITIVE [None]
